FAERS Safety Report 15417024 (Version 2)
Quarter: 2018Q4

REPORT INFORMATION
  Report Type: Spontaneous
  Country: US (occurrence: US)
  Receive Date: 20180924
  Receipt Date: 20181019
  Transmission Date: 20190204
  Serious: No
  Sender: FDA-Public Use
  Company Number: US-BAUSCH-BL-2018-025132

PATIENT
  Sex: Female
  Weight: 99.88 kg

DRUGS (2)
  1. VITAMIN D [Concomitant]
     Active Substance: CHOLECALCIFEROL
     Indication: PRODUCT USED FOR UNKNOWN INDICATION
     Dosage: 50000 ICU PER WEEK
  2. CARAC [Suspect]
     Active Substance: FLUOROURACIL
     Indication: ACTINIC KERATOSIS
     Dosage: APPLY A THIN LAYER TO FACE EVERY NIGHT FOR THREE WEEKS
     Route: 061
     Dates: start: 20151022, end: 201511

REACTIONS (4)
  - Application site pain [Recovered/Resolved]
  - Skin tightness [Recovered/Resolved]
  - Scar [Not Recovered/Not Resolved]
  - Application site irritation [Recovered/Resolved]

NARRATIVE: CASE EVENT DATE: 2015
